FAERS Safety Report 7536706-5 (Version None)
Quarter: 2011Q2

REPORT INFORMATION
  Report Type: 
  Country: None (occurrence: None)
  Receive Date: 20110609
  Receipt Date: 20110601
  Transmission Date: 20111010
  Serious: Yes (Other)
  Sender: FDA-Public Use
  Company Number: A0930811A

PATIENT
  Age: 36 Year
  Sex: Male
  Weight: 84.1 kg

DRUGS (3)
  1. FENOFIBRATE [Concomitant]
  2. NIASPAN [Suspect]
     Dosage: 10000MG PER DAY
     Route: 065
     Dates: start: 20110101
  3. LOVAZA [Suspect]
     Dosage: 3G PER DAY
     Route: 065

REACTIONS (1)
  - LIVER FUNCTION TEST ABNORMAL [None]
